FAERS Safety Report 7255014-3 (Version None)
Quarter: 2011Q1

REPORT INFORMATION
  Report Type: 
  Country: None (occurrence: None)
  Receive Date: 20110129
  Receipt Date: 20100205
  Transmission Date: 20110831
  Serious: No
  Sender: FDA-Public Use
  Company Number: US-ABBOTT-10P-163-0625105-00

PATIENT
  Sex: Female
  Weight: 37.682 kg

DRUGS (2)
  1. HUMIRA [Suspect]
     Indication: CROHN'S DISEASE
     Dates: start: 20091016
  2. HUMIRA [Suspect]
     Indication: ANKYLOSING SPONDYLITIS
     Dates: start: 20100115

REACTIONS (5)
  - PAIN [None]
  - ARTHRALGIA [None]
  - CROHN'S DISEASE [None]
  - ANKYLOSING SPONDYLITIS [None]
  - ABDOMINAL PAIN UPPER [None]
